FAERS Safety Report 18642099 (Version 1)
Quarter: 2020Q4

REPORT INFORMATION
  Report Type: Spontaneous
  Country: JP (occurrence: JP)
  Receive Date: 20201221
  Receipt Date: 20201221
  Transmission Date: 20210114
  Serious: Yes (Hospitalization)
  Sender: FDA-Public Use
  Company Number: JP-ROCHE-2493684

PATIENT
  Age: 81 Year
  Sex: Female

DRUGS (1)
  1. BONVIVA [Suspect]
     Active Substance: IBANDRONATE SODIUM
     Indication: OSTEOPOROSIS
     Route: 042
     Dates: start: 2018

REACTIONS (6)
  - Bone density decreased [Unknown]
  - Femur fracture [Unknown]
  - Dental care [Unknown]
  - Glaucoma [Unknown]
  - Blood pressure fluctuation [Unknown]
  - Mental disorder [Unknown]
